FAERS Safety Report 17891876 (Version 2)
Quarter: 2020Q2

REPORT INFORMATION
  Report Type: Spontaneous
  Country: DK (occurrence: DK)
  Receive Date: 20200612
  Receipt Date: 20200619
  Transmission Date: 20200714
  Serious: Yes (Hospitalization, Other)
  Sender: FDA-Public Use
  Company Number: DK-GLAXOSMITHKLINE-DK2020095930

PATIENT
  Age: 43 Year
  Sex: Male

DRUGS (2)
  1. KETOPROFEN. [Suspect]
     Active Substance: KETOPROFEN
     Indication: NEPHROLITHIASIS
     Dosage: UNK, STRENGTH: UNKNOWN. DOSAGE: UNKNOWN
     Route: 048
     Dates: start: 202005, end: 20200507
  2. DICLOFENAC [Suspect]
     Active Substance: DICLOFENAC
     Indication: NEPHROLITHIASIS
     Dosage: UNK, STRENGTH: UNKNOWN. DOSAGE: UNKNOWN
     Route: 048
     Dates: start: 202005, end: 20200507

REACTIONS (1)
  - Perforated ulcer [Recovered/Resolved]

NARRATIVE: CASE EVENT DATE: 20200507
